FAERS Safety Report 21952000 (Version 1)
Quarter: 2023Q1

REPORT INFORMATION
  Report Type: Report from Study
  Country: CA (occurrence: CA)
  Receive Date: 20230203
  Receipt Date: 20230203
  Transmission Date: 20230418
  Serious: No
  Sender: FDA-Public Use
  Company Number: CA-EXELIXIS-CABO-22048480

PATIENT
  Sex: Female

DRUGS (1)
  1. CABOMETYX [Suspect]
     Active Substance: CABOZANTINIB S-MALATE
     Indication: Follicular thyroid cancer
     Dosage: UNK, QD
     Route: 048
     Dates: start: 2020

REACTIONS (3)
  - Food allergy [Not Recovered/Not Resolved]
  - Dry skin [Not Recovered/Not Resolved]
  - Off label use [Unknown]
